FAERS Safety Report 21130981 (Version 4)
Quarter: 2022Q4

REPORT INFORMATION
  Report Type: Spontaneous
  Country: US (occurrence: US)
  Receive Date: 20220726
  Receipt Date: 20221222
  Transmission Date: 20230112
  Serious: Yes (Other)
  Sender: FDA-Public Use
  Company Number: US-BRISTOL-MYERS SQUIBB COMPANY-2022-075218

PATIENT
  Age: 75 Year
  Sex: Female

DRUGS (1)
  1. ZEPOSIA [Suspect]
     Active Substance: OZANIMOD HYDROCHLORIDE
     Indication: Product used for unknown indication
     Dosage: FREQUENCY: 1 CAPSULE DAILY
     Route: 048

REACTIONS (6)
  - Internal haemorrhage [Recovering/Resolving]
  - Nausea [Unknown]
  - Illness [Unknown]
  - Pain [Unknown]
  - Abdominal pain [Unknown]
  - Fatigue [Unknown]
